FAERS Safety Report 23644477 (Version 2)
Quarter: 2024Q2

REPORT INFORMATION
  Report Type: Spontaneous
  Country: US (occurrence: US)
  Receive Date: 20240318
  Receipt Date: 20240501
  Transmission Date: 20240715
  Serious: Yes (Death, Hospitalization, Other)
  Sender: FDA-Public Use
  Company Number: US-AUROBINDO-AUR-APL-2024-011831

PATIENT
  Age: 35 Year
  Sex: Female

DRUGS (1)
  1. COLCHICINE [Suspect]
     Active Substance: COLCHICINE
     Indication: Gout
     Dosage: UNK
     Route: 065

REACTIONS (12)
  - Ventricular fibrillation [Fatal]
  - Cardiac arrest [Fatal]
  - Nausea [Unknown]
  - Vomiting [Unknown]
  - Diarrhoea [Unknown]
  - Hyperhidrosis [Unknown]
  - Lethargy [Unknown]
  - Hypoxia [Unknown]
  - Agitation [Unknown]
  - Metabolic acidosis [Unknown]
  - Intentional overdose [Unknown]
  - Intentional product misuse [Unknown]
